FAERS Safety Report 6618800-6 (Version None)
Quarter: 2010Q1

REPORT INFORMATION
  Report Type: 
  Country: None (occurrence: None)
  Receive Date: 20100302
  Receipt Date: 20100215
  Transmission Date: 20100710
  Serious: Yes (Hospitalization)
  Sender: FDA-Public Use
  Company Number: IND1-CN-2010-0015

PATIENT
  Age: 12 Year
  Sex: Male

DRUGS (3)
  1. INDOCIN [Suspect]
     Indication: BARTTER'S SYNDROME
     Dosage: (2 MG/KG/DAILY), PER ORAL
     Route: 048
  2. POTASSIUM CHLORIDE (POTASSIUM CHORIDE) (POTASSIUM CHLORIDE) [Concomitant]
  3. SPIRONOLACTONE [Concomitant]

REACTIONS (6)
  - BLOOD ALDOSTERONE INCREASED [None]
  - GASTROENTERITIS [None]
  - HYPOKALAEMIA [None]
  - METABOLIC ALKALOSIS [None]
  - MUSCULAR WEAKNESS [None]
  - RENAL FAILURE CHRONIC [None]
